FAERS Safety Report 8854078 (Version 1)
Quarter: 2012Q4

REPORT INFORMATION
  Report Type: Spontaneous
  Country: US (occurrence: None)
  Receive Date: 20121019
  Receipt Date: 20121019
  Transmission Date: 20130627
  Serious: Yes (Other)
  Sender: FDA-Public Use
  Company Number: None

PATIENT
  Age: 43 Year
  Sex: Female
  Weight: 58.97 kg

DRUGS (1)
  1. MIRENA [Suspect]
     Indication: CONTRACEPTION
     Dates: start: 20061101, end: 20101110

REACTIONS (6)
  - Weight increased [None]
  - Libido decreased [None]
  - Menstrual disorder [None]
  - Back pain [None]
  - Pelvic pain [None]
  - Depressed mood [None]
